FAERS Safety Report 4668523-8 (Version None)
Quarter: 2005Q2

REPORT INFORMATION
  Report Type: 
  Country: None (occurrence: None)
  Receive Date: 20050519
  Receipt Date: 20050505
  Transmission Date: 20051028
  Serious: Yes (Other)
  Sender: FDA-Public Use
  Company Number: 214315

PATIENT
  Age: 68 Year
  Sex: Female

DRUGS (3)
  1. RITUXAN [Suspect]
     Indication: CHRONIC LYMPHOCYTIC LEUKAEMIA
  2. ULTRAM [Concomitant]
  3. ADVIL [Concomitant]

REACTIONS (17)
  - ASTHENIA [None]
  - CHILLS [None]
  - DRUG HYPERSENSITIVITY [None]
  - DRUG INTOLERANCE [None]
  - GASTROOESOPHAGEAL REFLUX DISEASE [None]
  - HEADACHE [None]
  - INFLUENZA [None]
  - INFUSION RELATED REACTION [None]
  - LUNG INFILTRATION [None]
  - MENINGITIS VIRAL [None]
  - PAIN [None]
  - PALPITATIONS [None]
  - PARAESTHESIA [None]
  - PNEUMONITIS [None]
  - PYREXIA [None]
  - RED BLOOD CELLS CSF POSITIVE [None]
  - SKIN EXFOLIATION [None]
